FAERS Safety Report 23908892 (Version 1)
Quarter: 2024Q2

REPORT INFORMATION
  Report Type: Spontaneous
  Country: US (occurrence: US)
  Receive Date: 20240528
  Receipt Date: 20240528
  Transmission Date: 20240716
  Serious: No
  Sender: FDA-Public Use
  Company Number: US-Dermavant-001140

PATIENT
  Age: 26 Year
  Sex: Female

DRUGS (2)
  1. TAPINAROF [Suspect]
     Active Substance: TAPINAROF
     Indication: Psoriasis
     Route: 061
  2. VITAMIN C [Concomitant]
     Active Substance: ASCORBIC ACID
     Route: 048

REACTIONS (2)
  - Application site discolouration [Unknown]
  - Post inflammatory pigmentation change [Unknown]
